FAERS Safety Report 4397670-3 (Version None)
Quarter: 2004Q3

REPORT INFORMATION
  Report Type: 
  Country: None (occurrence: None)
  Receive Date: 20040713
  Receipt Date: 20040707
  Transmission Date: 20050211
  Serious: Yes (Hospitalization)
  Sender: FDA-Public Use
  Company Number: TCI2004A02686

PATIENT
  Age: 9 Year
  Sex: Female

DRUGS (1)
  1. LEUPLIN   (LEUPROLIDE ACETATE) [Suspect]
     Indication: PRECOCIOUS PUBERTY
     Dosage: 1.88 MG (1.88 MG, 1 IN 28 D)
     Route: 058

REACTIONS (1)
  - IDIOPATHIC THROMBOCYTOPENIC PURPURA [None]
